FAERS Safety Report 8770139 (Version 1)
Quarter: 2012Q4

REPORT INFORMATION
  Report Type: 
  Country: GB (occurrence: GB)
  Receive Date: 20120904
  Receipt Date: 20120904
  Transmission Date: 20130627
  Serious: Yes (Life-Threatening)
  Sender: FDA-Public Use
  Company Number: GB-AMGEN-GBRSP2012055000

PATIENT
  Age: 41 Year
  Sex: Female

DRUGS (4)
  1. ENBREL [Suspect]
     Indication: RHEUMATOID ARTHRITIS
     Dosage: 50 mg, UNK
     Route: 058
     Dates: start: 200501, end: 201207
  2. METHOTREXATE [Concomitant]
     Dosage: 7.5mg
     Route: 048
     Dates: start: 2005, end: 201207
  3. FOLIC ACID [Concomitant]
     Dosage: 10mg
     Route: 048
     Dates: start: 2005, end: 201207
  4. CO-DYDRAMOL [Concomitant]
     Dosage: UNK
     Route: 048
     Dates: start: 2003

REACTIONS (1)
  - Breast cancer [Not Recovered/Not Resolved]
